FAERS Safety Report 20767254 (Version 8)
Quarter: 2023Q1

REPORT INFORMATION
  Report Type: Spontaneous
  Country: US (occurrence: US)
  Receive Date: 20220429
  Receipt Date: 20230227
  Transmission Date: 20230417
  Serious: Yes (Hospitalization, Other)
  Sender: FDA-Public Use
  Company Number: US-BRISTOL-MYERS SQUIBB COMPANY-2022-024372

PATIENT
  Age: 73 Year

DRUGS (1)
  1. PACLITAXEL [Suspect]
     Active Substance: PACLITAXEL
     Indication: Product used for unknown indication

REACTIONS (7)
  - Immune-mediated enterocolitis [Recovered/Resolved with Sequelae]
  - Dyspnoea [Recovered/Resolved]
  - Rash maculo-papular [Recovered/Resolved with Sequelae]
  - Aspartate aminotransferase increased [Recovered/Resolved]
  - Hypokalaemia [Recovered/Resolved]
  - Colitis [Recovered/Resolved with Sequelae]
  - Immune-mediated dermatitis [Recovered/Resolved with Sequelae]
